FAERS Safety Report 23157351 (Version 2)
Quarter: 2023Q4

REPORT INFORMATION
  Report Type: Spontaneous
  Country: US (occurrence: US)
  Receive Date: 20231108
  Receipt Date: 20231124
  Transmission Date: 20240110
  Serious: Yes (Hospitalization, Other)
  Sender: FDA-Public Use
  Company Number: US-BAXTER-2023BAX035137

PATIENT
  Sex: Female

DRUGS (2)
  1. EXTRANEAL [Suspect]
     Active Substance: CALCIUM CHLORIDE\ICODEXTRIN\MAGNESIUM CHLORIDE\SODIUM CHLORIDE\SODIUM LACTATE
     Indication: End stage renal disease
     Dosage: UNK
     Route: 033
     Dates: end: 202310
  2. DIANEAL [Suspect]
     Active Substance: CALCIUM CHLORIDE\DEXTROSE\MAGNESIUM CHLORIDE\SODIUM CHLORIDE\SODIUM LACTATE
     Indication: End stage renal disease
     Route: 033

REACTIONS (9)
  - Haemoglobin decreased [Recovering/Resolving]
  - Retroperitoneal haemorrhage [Unknown]
  - Renal cyst haemorrhage [Unknown]
  - Anaemia [Recovering/Resolving]
  - Illness [Unknown]
  - Asthenia [Not Recovered/Not Resolved]
  - Drug hypersensitivity [Recovering/Resolving]
  - Rash [Recovering/Resolving]
  - Pruritus [Recovering/Resolving]
